FAERS Safety Report 15371003 (Version 1)
Quarter: 2018Q3

REPORT INFORMATION
  Report Type: Spontaneous
  Country: FR (occurrence: FR)
  Receive Date: 20180911
  Receipt Date: 20180911
  Transmission Date: 20181010
  Serious: Yes (Hospitalization)
  Sender: FDA-Public Use
  Company Number: FR-TEVA-2018-FR-953549

PATIENT
  Age: 28 Year
  Sex: Male

DRUGS (2)
  1. ACIDE CLAVULANIQUE [Suspect]
     Active Substance: CLAVULANIC ACID
     Indication: ANIMAL BITE
     Route: 048
     Dates: start: 20160315, end: 20160315
  2. AMOXICILLINE [Suspect]
     Active Substance: AMOXICILLIN
     Indication: ANIMAL BITE
     Route: 048
     Dates: start: 20160315, end: 20160315

REACTIONS (1)
  - Anaphylactic shock [Recovered/Resolved]

NARRATIVE: CASE EVENT DATE: 20160315
